FAERS Safety Report 14718398 (Version 4)
Quarter: 2020Q1

REPORT INFORMATION
  Report Type: Report from Study
  Country: US (occurrence: US)
  Receive Date: 20180404
  Receipt Date: 20200123
  Transmission Date: 20200409
  Serious: No
  Sender: FDA-Public Use
  Company Number: US-SA-2018SA078428

PATIENT
  Age: 55 Year
  Sex: Female

DRUGS (3)
  1. DUPILUMAB [Suspect]
     Active Substance: DUPILUMAB
     Dosage: 300 MG, QOW
     Route: 058
     Dates: start: 20170526
  2. DUPILUMAB [Suspect]
     Active Substance: DUPILUMAB
     Indication: DERMATITIS ATOPIC
     Dosage: UNK
  3. DUPILUMAB [Suspect]
     Active Substance: DUPILUMAB
     Dosage: 200 MG, QOW
     Route: 058

REACTIONS (11)
  - Injury associated with device [Unknown]
  - Arthropathy [Unknown]
  - Hangover [Recovered/Resolved]
  - Product use issue [Unknown]
  - Fatigue [Unknown]
  - Exostosis [Unknown]
  - Condition aggravated [Unknown]
  - Dizziness [Unknown]
  - Wrong technique in device usage process [Unknown]
  - Arthralgia [Unknown]
  - Alopecia [Not Recovered/Not Resolved]

NARRATIVE: CASE EVENT DATE: 20180301
